FAERS Safety Report 16137006 (Version 6)
Quarter: 2021Q2

REPORT INFORMATION
  Report Type: Report from Study
  Country: US (occurrence: US)
  Receive Date: 20190401
  Receipt Date: 20210501
  Transmission Date: 20210716
  Serious: Yes (Hospitalization, Other)
  Sender: FDA-Public Use
  Company Number: US-ALEXION PHARMACEUTICALS INC.-A201904609

PATIENT
  Sex: Female

DRUGS (1)
  1. SOLIRIS [Suspect]
     Active Substance: ECULIZUMAB
     Indication: MYASTHENIA GRAVIS
     Dosage: 900 MG, QW
     Route: 042

REACTIONS (23)
  - Bone pain [Recovered/Resolved]
  - Headache [Unknown]
  - Myalgia [Unknown]
  - Abdominal pain [Unknown]
  - Dyspepsia [Unknown]
  - Migraine [Unknown]
  - Fall [Unknown]
  - Muscle strain [Unknown]
  - Anxiety [Unknown]
  - Joint injury [Unknown]
  - Pain [Not Recovered/Not Resolved]
  - Rash [Unknown]
  - Nausea [Unknown]
  - Seizure [Unknown]
  - Myocardial infarction [Unknown]
  - Influenza like illness [Recovered/Resolved]
  - Muscle injury [Unknown]
  - Limb injury [Unknown]
  - Chest injury [Unknown]
  - Dysphonia [Unknown]
  - Gait disturbance [Unknown]
  - Muscle atrophy [Unknown]
  - Asthenia [Unknown]

NARRATIVE: CASE EVENT DATE: 201905
